FAERS Safety Report 5485391-5 (Version None)
Quarter: 2007Q4

REPORT INFORMATION
  Report Type: 
  Country: None (occurrence: None)
  Receive Date: 20071015
  Receipt Date: 20071004
  Transmission Date: 20080405
  Serious: Yes (Other)
  Sender: FDA-Public Use
  Company Number: GB-JNJFOC-20071001291

PATIENT
  Age: 69 Year
  Sex: Female
  Weight: 72 kg

DRUGS (7)
  1. CAELYX [Suspect]
     Indication: OVARIAN CANCER
     Route: 042
  2. ETOPOSIDE [Concomitant]
     Indication: OVARIAN CANCER
     Route: 048
  3. FLUTICASONE PROPIONATE [Concomitant]
     Indication: NASAL POLYPS
     Route: 045
  4. HUMALOG [Concomitant]
     Indication: DIABETES MELLITUS
     Route: 058
  5. LANTUS [Concomitant]
     Indication: DIABETES MELLITUS
     Route: 058
  6. SERETIDE [Concomitant]
     Indication: ASTHMA
     Route: 055
  7. PALONOSETRON [Concomitant]
     Indication: ANTIEMETIC SUPPORTIVE CARE
     Route: 042

REACTIONS (9)
  - CONVULSION [None]
  - DIZZINESS [None]
  - FLATULENCE [None]
  - HYPERSENSITIVITY [None]
  - HYPOTENSION [None]
  - LOSS OF CONSCIOUSNESS [None]
  - PALLOR [None]
  - URINARY INCONTINENCE [None]
  - URTICARIA [None]
